FAERS Safety Report 11217483 (Version 5)
Quarter: 2016Q1

REPORT INFORMATION
  Report Type: Spontaneous
  Country: US (occurrence: US)
  Receive Date: 20150625
  Receipt Date: 20160125
  Transmission Date: 20160525
  Serious: No
  Sender: FDA-Public Use
  Company Number: US-ASTRAZENECA-2015SE35800

PATIENT
  Age: 896 Month
  Sex: Male
  Weight: 77.1 kg

DRUGS (3)
  1. BYDUREON [Suspect]
     Active Substance: EXENATIDE
     Indication: TYPE 2 DIABETES MELLITUS
     Route: 058
     Dates: start: 201503
  2. NOVOLOG [Concomitant]
     Active Substance: INSULIN ASPART
     Indication: TYPE 2 DIABETES MELLITUS
     Dosage: 70/30 FLEX PEN, TWO TIMES A DAY
     Route: 058
  3. PRIMIDONE. [Concomitant]
     Active Substance: PRIMIDONE
     Indication: TREMOR

REACTIONS (9)
  - Device issue [Unknown]
  - Injection site extravasation [Unknown]
  - Product quality issue [Unknown]
  - Injection site bruising [Not Recovered/Not Resolved]
  - Injection site haemorrhage [Unknown]
  - Medication error [Unknown]
  - Intentional device misuse [Unknown]
  - Underdose [Unknown]
  - Injection site pain [Not Recovered/Not Resolved]

NARRATIVE: CASE EVENT DATE: 201503
